FAERS Safety Report 20531726 (Version 1)
Quarter: 2022Q1

REPORT INFORMATION
  Report Type: Spontaneous
  Country: US (occurrence: None)
  Receive Date: 20220228
  Receipt Date: 20220228
  Transmission Date: 20220423
  Serious: Yes (Hospitalization)
  Sender: FDA-Public Use
  Company Number: None

PATIENT
  Age: 14 Year
  Sex: Female

DRUGS (2)
  1. CREON [Suspect]
     Active Substance: PANCRELIPASE AMYLASE\PANCRELIPASE LIPASE\PANCRELIPASE PROTEASE
     Indication: Infective pulmonary exacerbation of cystic fibrosis
     Dosage: OTHER QUANTITY : 24000-76000 UNIT?? TAKE 4 CAPSULES BY MOUTH 3 TIMES DAILY WITH MEALS AND 2-4 CAPSUL
     Route: 048
  2. CREON [Suspect]
     Active Substance: PANCRELIPASE AMYLASE\PANCRELIPASE LIPASE\PANCRELIPASE PROTEASE
     Dosage: FREQUENCY : 3 TIMES A DAY;?
     Route: 048

REACTIONS (1)
  - Pulmonary function test decreased [None]

NARRATIVE: CASE EVENT DATE: 20220224
